FAERS Safety Report 9290420 (Version 1)
Quarter: 2013Q2

REPORT INFORMATION
  Report Type: Spontaneous
  Country: US (occurrence: US)
  Receive Date: 20130515
  Receipt Date: 20130515
  Transmission Date: 20140414
  Serious: Yes (Death)
  Sender: FDA-Public Use
  Company Number: US-PFIZER INC-2013148071

PATIENT
  Age: 61 Year
  Sex: Female

DRUGS (4)
  1. XALKORI [Suspect]
     Dosage: 250 MG, 2X/DAY
     Route: 048
  2. ONDANSETRON [Concomitant]
     Dosage: 8 MG, UNK
  3. LEVOTHYROXINE [Concomitant]
     Dosage: 88 UG, UNK
  4. VITAMIN C [Concomitant]
     Dosage: 500 MG, 1X/DAY

REACTIONS (1)
  - Death [Fatal]
